FAERS Safety Report 15222160 (Version 2)
Quarter: 2018Q3

REPORT INFORMATION
  Report Type: Spontaneous
  Country: US (occurrence: US)
  Receive Date: 20180731
  Receipt Date: 20180810
  Transmission Date: 20181010
  Serious: Yes (Congenital Anomaly)
  Sender: FDA-Public Use
  Company Number: US-009507513-1007USA01934B1

PATIENT
  Age: 1 Day

DRUGS (5)
  1. INTELENCE [Suspect]
     Active Substance: ETRAVIRINE
     Route: 064
  2. TRUVADA [Suspect]
     Active Substance: EMTRICITABINE\TENOFOVIR DISOPROXIL FUMARATE
     Route: 064
  3. NORVIR [Suspect]
     Active Substance: RITONAVIR
     Route: 064
  4. ISENTRESS [Suspect]
     Active Substance: RALTEGRAVIR POTASSIUM
     Route: 064
  5. PREZISTA [Suspect]
     Active Substance: DARUNAVIR ETHANOLATE
     Route: 064

REACTIONS (2)
  - Congenital anomaly [Unknown]
  - Foetal exposure during pregnancy [Recovered/Resolved]
